FAERS Safety Report 12982797 (Version 2)
Quarter: 2017Q1

REPORT INFORMATION
  Report Type: Report from Study
  Country: FR (occurrence: FR)
  Receive Date: 20161129
  Receipt Date: 20170213
  Transmission Date: 20170428
  Serious: Yes (Hospitalization, Other)
  Sender: FDA-Public Use
  Company Number: FR-CELGENEUS-FRA-2016114548

PATIENT
  Age: 68 Year
  Sex: Female
  Weight: 58 kg

DRUGS (26)
  1. ENTERAL [Concomitant]
     Indication: PRODUCT USED FOR UNKNOWN INDICATION
     Route: 065
     Dates: start: 20161125
  2. LASILIX [Concomitant]
     Active Substance: FUROSEMIDE
     Indication: PRODUCT USED FOR UNKNOWN INDICATION
     Route: 065
  3. DEXAMETHASONE ORAL [Suspect]
     Active Substance: DEXAMETHASONE
     Indication: PLASMA CELL MYELOMA
     Dosage: 20 MG
     Route: 048
     Dates: start: 20150528, end: 20161109
  4. ZARXIO [Concomitant]
     Active Substance: FILGRASTIM-SNDZ
     Indication: PROPHYLAXIS
     Route: 058
     Dates: start: 20160702
  5. PENTACARINAT [Concomitant]
     Active Substance: PENTAMIDINE ISETHIONATE
     Indication: INFECTION PROPHYLAXIS
     Route: 055
     Dates: start: 20161024
  6. TAREG [Concomitant]
     Active Substance: VALSARTAN
     Indication: HYPERTENSION
     Route: 048
     Dates: start: 2000
  7. PLATELETS [Concomitant]
     Active Substance: HUMAN PLATELET, ALLOGENIC
     Route: 041
     Dates: start: 20161114
  8. NOREPINEPHRINE [Concomitant]
     Active Substance: NOREPINEPHRINE\NOREPINEPHRINE BITARTRATE
     Indication: PRODUCT USED FOR UNKNOWN INDICATION
     Dosage: 360 MILLIGRAM
     Route: 065
  9. ZELITREX [Concomitant]
     Active Substance: VALACYCLOVIR HYDROCHLORIDE
     Indication: INFECTION PROPHYLAXIS
     Route: 048
     Dates: start: 20150528
  10. AMLOR [Concomitant]
     Active Substance: AMLODIPINE BESYLATE
     Indication: HYPERTENSION
     Dosage: 10 MILLIGRAM
     Route: 065
  11. COUMADINE [Concomitant]
     Active Substance: WARFARIN SODIUM
     Indication: ATRIAL FIBRILLATION
     Dosage: 6 MILLIGRAM
     Route: 065
  12. SETOFILM [Concomitant]
     Active Substance: ONDANSETRON
     Indication: PRODUCT USED FOR UNKNOWN INDICATION
     Route: 065
  13. PLATELETS [Concomitant]
     Active Substance: HUMAN PLATELET, ALLOGENIC
     Indication: THROMBOCYTOPENIA
     Dosage: 2 UNITS
     Route: 041
  14. CORDARONE [Concomitant]
     Active Substance: AMIODARONE HYDROCHLORIDE
     Indication: ATRIAL FIBRILLATION
     Dosage: 200 MILLIGRAM
     Route: 065
     Dates: start: 20161203
  15. CYMEVAN [Concomitant]
     Active Substance: GANCICLOVIR
     Indication: CYTOMEGALOVIRUS INFECTION
     Route: 065
     Dates: start: 20161208
  16. HEPARIN [Concomitant]
     Active Substance: HEPARIN SODIUM
     Indication: THROMBOSIS PROPHYLAXIS
     Route: 055
     Dates: start: 20161024
  17. CYCLOPHOSPHAMIDE. [Suspect]
     Active Substance: CYCLOPHOSPHAMIDE
     Indication: PLASMA CELL MYELOMA
     Dosage: 200 MG
     Route: 065
     Dates: start: 20150528, end: 20160407
  18. ERTAPENEM [Concomitant]
     Active Substance: ERTAPENEM
     Indication: URINARY TRACT INFECTION
     Route: 065
  19. G-CSF [Concomitant]
     Active Substance: GRANULOCYTE COLONY-STIMULATING FACTOR NOS
     Indication: PRODUCT USED FOR UNKNOWN INDICATION
     Route: 065
  20. EUPRESSYL [Concomitant]
     Active Substance: URAPIDIL
     Indication: HYPERTENSION
     Route: 065
  21. REANUTRIFLEX [Concomitant]
     Indication: PRODUCT USED FOR UNKNOWN INDICATION
     Route: 065
     Dates: end: 20161125
  22. ADRENALINE [Concomitant]
     Active Substance: EPINEPHRINE
     Indication: PRODUCT USED FOR UNKNOWN INDICATION
     Dosage: 144 MILLIGRAM
     Route: 065
     Dates: end: 20161117
  23. POMALIDOMIDE [Suspect]
     Active Substance: POMALIDOMIDE
     Indication: PLASMA CELL MYELOMA
     Dosage: 2 MG
     Route: 048
     Dates: start: 20150528, end: 20161112
  24. PACKED RED BLOOD CELLS [Concomitant]
     Active Substance: HUMAN RED BLOOD CELL
     Indication: ANAEMIA
     Dosage: 5 UNITS
     Route: 041
  25. DUROGESIC [Concomitant]
     Active Substance: FENTANYL
     Indication: PRODUCT USED FOR UNKNOWN INDICATION
     Route: 065
  26. SODIUM BICARBONATE. [Concomitant]
     Active Substance: SODIUM BICARBONATE
     Indication: PRODUCT USED FOR UNKNOWN INDICATION
     Route: 065

REACTIONS (1)
  - Clostridial sepsis [Recovered/Resolved]

NARRATIVE: CASE EVENT DATE: 20161110
